FAERS Safety Report 15221437 (Version 1)
Quarter: 2018Q3

REPORT INFORMATION
  Report Type: Spontaneous
  Country: US (occurrence: US)
  Receive Date: 20180731
  Receipt Date: 20180731
  Transmission Date: 20181010
  Serious: Yes (Other)
  Sender: FDA-Public Use
  Company Number: US-BAUSCH-BL-2018-020450

PATIENT
  Sex: Male

DRUGS (2)
  1. FLUNISOLIDE NASAL SOLUTION USP 0.025% [Suspect]
     Active Substance: FLUNISOLIDE
     Indication: NASAL OBSTRUCTION
     Route: 045
  2. FLUNISOLIDE NASAL SOLUTION USP 0.025% [Suspect]
     Active Substance: FLUNISOLIDE
     Indication: OFF LABEL USE

REACTIONS (4)
  - Drug ineffective for unapproved indication [Unknown]
  - Burning sensation [Unknown]
  - Choking [Unknown]
  - Retching [Unknown]
